FAERS Safety Report 7923697 (Version 7)
Quarter: 2013Q1

REPORT INFORMATION
  Report Type: Spontaneous
  Country: US (occurrence: US)
  Receive Date: 20110429
  Receipt Date: 20130328
  Transmission Date: 20140127
  Serious: Yes (Hospitalization, Other)
  Sender: FDA-Public Use
  Company Number: US-009507513-1104USA02929

PATIENT
  Sex: Female
  Weight: 83.45 kg

DRUGS (10)
  1. FOSAMAX [Suspect]
     Indication: OSTEOPENIA
     Dosage: 35 MG, UNK
     Route: 048
     Dates: start: 20060827, end: 20070516
  2. FOSAMAX [Suspect]
     Indication: OSTEOPOROSIS
  3. FOSAMAX PLUS D [Suspect]
     Dosage: 70 MG, UNK
     Route: 048
     Dates: start: 20070516, end: 20090203
  4. FOSAMAX PLUS D [Suspect]
     Dosage: 70 MG, UNK
     Route: 048
     Dates: start: 20090406, end: 20100201
  5. LIPITOR [Concomitant]
     Indication: BLOOD CHOLESTEROL INCREASED
     Dosage: UNK
     Route: 048
     Dates: start: 200009
  6. ASPIRIN [Concomitant]
  7. IBUPROFEN [Concomitant]
  8. ZOFRAN [Concomitant]
  9. TEMAZEPAM [Concomitant]
  10. LISINOPRIL [Concomitant]
     Dosage: UNK

REACTIONS (59)
  - Femur fracture [Recovered/Resolved]
  - Osteonecrosis [Recovered/Resolved]
  - Internal fixation of fracture [Unknown]
  - Medical device removal [Unknown]
  - Appendicectomy [Unknown]
  - Deafness [Unknown]
  - Removal of internal fixation [Unknown]
  - Anaemia postoperative [Recovered/Resolved]
  - Chest pain [Unknown]
  - Polymyalgia rheumatica [Unknown]
  - Cartilage injury [Unknown]
  - Meniscus removal [Unknown]
  - Hypertension [Unknown]
  - Fracture delayed union [Recovered/Resolved]
  - Pain [Unknown]
  - Spinal osteoarthritis [Unknown]
  - Biopsy artery [Unknown]
  - Colonoscopy [Unknown]
  - Transient ischaemic attack [Unknown]
  - Vitamin D decreased [Unknown]
  - Hypothyroidism [Unknown]
  - Eye disorder [Unknown]
  - Cataract operation [Unknown]
  - Diverticulitis [Unknown]
  - Insomnia [Recovered/Resolved]
  - Bursitis [Unknown]
  - Osteoarthritis [Unknown]
  - Macular degeneration [Unknown]
  - Carotid arteriosclerosis [Unknown]
  - Sinus tachycardia [Recovered/Resolved]
  - Malabsorption [Unknown]
  - Osteomalacia [Unknown]
  - Hypercalcaemia [Unknown]
  - Bronchitis [Unknown]
  - Bone metabolism disorder [Unknown]
  - Blood uric acid increased [Unknown]
  - Bladder prolapse [Unknown]
  - Anxiety [Recovered/Resolved]
  - Depression [Recovered/Resolved]
  - Nephrolithiasis [Unknown]
  - Calcium deficiency [Recovering/Resolving]
  - Exostosis [Unknown]
  - Cough [Recovered/Resolved]
  - Nasal congestion [Unknown]
  - Haemorrhoids [Unknown]
  - Chronic obstructive pulmonary disease [Not Recovered/Not Resolved]
  - Fall [Unknown]
  - Contusion [Unknown]
  - Diverticulum [Unknown]
  - Carpal tunnel syndrome [Recovering/Resolving]
  - Fracture nonunion [Unknown]
  - Vertigo [Unknown]
  - Dyspepsia [Unknown]
  - Nausea [Unknown]
  - Gastrooesophageal reflux disease [Unknown]
  - Drug ineffective [Unknown]
  - Dizziness [Unknown]
  - Constipation [Unknown]
  - Tendon operation [Unknown]
